FAERS Safety Report 8798245 (Version 2)
Quarter: 2012Q4

REPORT INFORMATION
  Report Type: 
  Country: US (occurrence: US)
  Receive Date: 20120920
  Receipt Date: 20121017
  Transmission Date: 20130627
  Serious: Yes (Other)
  Sender: FDA-Public Use
  Company Number: US-PFIZER INC-2012229305

PATIENT
  Age: 89 Year
  Sex: Female

DRUGS (2)
  1. ATORVASTATIN CALCIUM [Suspect]
     Dosage: UNK
  2. CRESTOR [Suspect]
     Dosage: UNK

REACTIONS (11)
  - Head injury [Unknown]
  - Fall [Unknown]
  - Headache [Unknown]
  - Drug ineffective [Unknown]
  - Hypersensitivity [Unknown]
  - Oedema peripheral [Unknown]
  - Paraesthesia [Unknown]
  - Skin discolouration [Unknown]
  - Pain in extremity [Unknown]
  - Pain [Unknown]
  - Oedema peripheral [Unknown]
